FAERS Safety Report 9276696 (Version 1)
Quarter: 2013Q2

REPORT INFORMATION
  Report Type: Spontaneous
  Country: ES (occurrence: ES)
  Receive Date: 20130507
  Receipt Date: 20130507
  Transmission Date: 20140414
  Serious: Yes (Hospitalization)
  Sender: FDA-Public Use
  Company Number: PHHY2013ES038089

PATIENT
  Age: 37 Year
  Sex: Female

DRUGS (5)
  1. GILENYA [Suspect]
     Indication: MULTIPLE SCLEROSIS
     Dosage: 0.5 MG, UNK
     Route: 048
     Dates: start: 20130417
  2. GILENYA [Suspect]
     Dosage: 0.5 MG, UNK
     Route: 048
     Dates: start: 20130502
  3. AZOL [Concomitant]
     Indication: VULVOVAGINAL CANDIDIASIS
  4. ITRACONAZOL [Concomitant]
     Indication: VULVOVAGINAL CANDIDIASIS
     Dosage: 200 MG, UNK
     Route: 048
     Dates: start: 20130414, end: 20130416
  5. CLOTRIMAZOL [Concomitant]
     Indication: VULVOVAGINAL CANDIDIASIS
     Dosage: 20 MG, UNK
     Route: 067
     Dates: start: 20130414, end: 20130421

REACTIONS (6)
  - Tachycardia [Unknown]
  - Atrioventricular block complete [Recovered/Resolved]
  - Heart rate decreased [Recovered/Resolved]
  - Palpitations [Recovered/Resolved]
  - Atrioventricular block second degree [Recovered/Resolved]
  - Atrioventricular block first degree [Recovered/Resolved]
